FAERS Safety Report 17708086 (Version 1)
Quarter: 2020Q2

REPORT INFORMATION
  Report Type: Spontaneous
  Country: GB (occurrence: GB)
  Receive Date: 20200425
  Receipt Date: 20200425
  Transmission Date: 20200714
  Serious: Yes (Other)
  Sender: FDA-Public Use
  Company Number: GB-ACCORD-179420

PATIENT
  Age: 45 Year
  Sex: Male

DRUGS (5)
  1. RAMIPRIL. [Concomitant]
     Active Substance: RAMIPRIL
     Dates: start: 20200124, end: 20200221
  2. ALLOPURINOL. [Suspect]
     Active Substance: ALLOPURINOL
     Indication: PRODUCT USED FOR UNKNOWN INDICATION
     Dosage: INCREASE AS SYMPTOMS REQUIRE
     Dates: start: 20200319
  3. LOSARTAN. [Concomitant]
     Active Substance: LOSARTAN
     Dates: start: 20200311
  4. NAPROXEN. [Concomitant]
     Active Substance: NAPROXEN
     Dates: start: 20200109, end: 20200123
  5. COLCHICINE. [Concomitant]
     Active Substance: COLCHICINE
     Indication: GOUT
     Dosage: 1MG THEN 500MICROGRAMS TWO TO THREE TIMES/DAY.
     Dates: start: 20200319

REACTIONS (2)
  - Wheezing [Unknown]
  - Mouth ulceration [Recovering/Resolving]

NARRATIVE: CASE EVENT DATE: 20200325
